FAERS Safety Report 16008550 (Version 2)
Quarter: 2020Q3

REPORT INFORMATION
  Report Type: Spontaneous
  Country: CO (occurrence: CO)
  Receive Date: 20190225
  Receipt Date: 20200724
  Transmission Date: 20201102
  Serious: Yes (Other)
  Sender: FDA-Public Use
  Company Number: CO-ROCHE-2268608

PATIENT
  Sex: Female
  Weight: 55 kg

DRUGS (1)
  1. XOLAIR [Suspect]
     Active Substance: OMALIZUMAB
     Indication: URTICARIA VESICULOSA
     Route: 058
     Dates: start: 20190205, end: 20190206

REACTIONS (10)
  - Malaise [Recovering/Resolving]
  - Dyspnoea [Unknown]
  - Dizziness [Recovering/Resolving]
  - Throat irritation [Recovering/Resolving]
  - Feeling abnormal [Recovering/Resolving]
  - Hypersensitivity [Recovering/Resolving]
  - Head discomfort [Unknown]
  - Chest discomfort [Recovering/Resolving]
  - Aphonia [Recovering/Resolving]
  - Off label use [Unknown]

NARRATIVE: CASE EVENT DATE: 20190205
